FAERS Safety Report 5742567-7 (Version None)
Quarter: 2008Q2

REPORT INFORMATION
  Report Type: 
  Country: None (occurrence: None)
  Receive Date: 20080515
  Receipt Date: 20080515
  Transmission Date: 20081010
  Serious: Yes (Life-Threatening)
  Sender: FDA-Public Use
  Company Number: None

PATIENT
  Age: 56 Year
  Sex: Female
  Weight: 75.2971 kg

DRUGS (1)
  1. AMBIEN CR [Suspect]
     Indication: INSOMNIA
     Dosage: 1 12.5 TAB @ BEDTIME  ORAL
     Route: 048
     Dates: start: 20060101, end: 20070901

REACTIONS (2)
  - IMPRISONMENT [None]
  - SOMNAMBULISM [None]
